FAERS Safety Report 4359315-8 (Version None)
Quarter: 2004Q2

REPORT INFORMATION
  Report Type: 
  Country: None (occurrence: None)
  Receive Date: 20040512
  Receipt Date: 20040430
  Transmission Date: 20050107
  Serious: Yes (Other)
  Sender: FDA-Public Use
  Company Number: 040019

PATIENT
  Age: 9 Year
  Sex: Female
  Weight: 42.6381 kg

DRUGS (2)
  1. MIRALAX [Suspect]
     Indication: CONSTIPATION
     Dosage: 8.5 GRAMS DAILY PO
     Route: 048
     Dates: start: 20031101
  2. ANTIBIOTICS (STREP THROAT + EAR INFECTION) [Concomitant]

REACTIONS (5)
  - ARRHYTHMIA [None]
  - HEADACHE [None]
  - MUSCLE CRAMP [None]
  - TIC [None]
  - VISION BLURRED [None]
